FAERS Safety Report 6006565-0 (Version None)
Quarter: 2008Q4

REPORT INFORMATION
  Report Type: 
  Country: None (occurrence: None)
  Receive Date: 20081217
  Receipt Date: 20081210
  Transmission Date: 20090506
  Serious: Yes (Hospitalization, Disabling, Other)
  Sender: FDA-Public Use
  Company Number: FR-PFIZER INC-2008037708

PATIENT

DRUGS (30)
  1. DEPO-MEDROL [Suspect]
     Dates: start: 20020216, end: 20040201
  2. CORTANCYL [Suspect]
     Indication: ACUTE LYMPHOCYTIC LEUKAEMIA
     Dates: start: 20020216, end: 20040201
  3. DEXAMETHASONE [Suspect]
     Indication: ACUTE LYMPHOCYTIC LEUKAEMIA
     Route: 042
     Dates: start: 20020216, end: 20040201
  4. DEXAMETHASONE [Suspect]
  5. MERCAPTOPURINE [Concomitant]
  6. CYCLOPHOSPHAMIDE [Concomitant]
  7. CYTARABINE [Concomitant]
  8. METHOTREXATE [Concomitant]
  9. METOCLOPRAMIDE [Concomitant]
  10. NEUPOGEN [Concomitant]
  11. VINCRISTINE SULFATE [Concomitant]
  12. ETOPOSIDE [Concomitant]
  13. LENOGRASTIM [Concomitant]
  14. LORAZEPAM [Concomitant]
  15. CEFTAZIDIME PENTAHYDRATE [Concomitant]
  16. CEFUROXIME AXETIL [Concomitant]
  17. CIPROFLOXACIN HCL [Concomitant]
  18. TRAMADOL HCL [Concomitant]
  19. TETRAZEPAM [Concomitant]
  20. OMEPRAZOLE [Concomitant]
  21. ALL OTHER THERAPEUTIC PRODUCTS [Concomitant]
  22. FLUCONAZOLE [Concomitant]
  23. DOMPERIDONE [Concomitant]
  24. CODEINE PHOSPHATE/PARACETAMOL [Concomitant]
  25. ETOPOSIDE [Concomitant]
  26. BROMAZEPAM [Concomitant]
  27. LEUCOVORIN CALCIUM [Concomitant]
  28. AMITRIPTYLINE HYDROCHLORIDE [Concomitant]
  29. DICLOFENAC SODIUM [Concomitant]
  30. ESOMEPRAZOLE MAGNESIUM [Concomitant]

REACTIONS (14)
  - ANAEMIA [None]
  - ANXIETY [None]
  - BONE MARROW FAILURE [None]
  - CONVULSION [None]
  - DEPRESSION [None]
  - EAR INFECTION [None]
  - HYPERCHOLESTEROLAEMIA [None]
  - HYPERTRIGLYCERIDAEMIA [None]
  - HYPOGAMMAGLOBULINAEMIA [None]
  - INTENTIONAL DRUG MISUSE [None]
  - LEUKOPENIA [None]
  - MONOCYTOSIS [None]
  - OSTEONECROSIS [None]
  - SINUSITIS [None]
